FAERS Safety Report 4712716-8 (Version None)
Quarter: 2005Q3

REPORT INFORMATION
  Report Type: 
  Country: None (occurrence: None)
  Receive Date: 20050706
  Receipt Date: 20041117
  Transmission Date: 20060218
  Serious: Yes (Other)
  Sender: FDA-Public Use
  Company Number: 2004US001252

PATIENT
  Age: 67 Year
  Sex: Male
  Weight: 95.2 kg

DRUGS (13)
  1. ADENOSCAN [Suspect]
     Indication: SCAN MYOCARDIAL PERFUSION
     Dosage: 56.00 MG, TOTAL DOSE, IV NOS
     Route: 042
     Dates: start: 20040914, end: 20040914
  2. CARDIOLITE [Concomitant]
  3. FLOMAX [Concomitant]
  4. PROTONIX [Concomitant]
  5. SODIUM CHLORIDE 0.9% [Concomitant]
  6. TENORMIN [Concomitant]
  7. ATIVAN [Concomitant]
  8. DARVOCET-N (DEXTROPROPOXYPHENE NAPSILATE) [Concomitant]
  9. ATENOLOL [Concomitant]
  10. PRILOSEC [Concomitant]
  11. ZOCOR [Concomitant]
  12. CELEXA [Concomitant]
  13. ASPIRIN [Concomitant]

REACTIONS (2)
  - CARDIAC ARREST [None]
  - MEDICATION ERROR [None]
